FAERS Safety Report 5009535-4 (Version None)
Quarter: 2006Q2

REPORT INFORMATION
  Report Type: 
  Country: None (occurrence: None)
  Receive Date: 20060522
  Receipt Date: 20060515
  Transmission Date: 20061013
  Serious: Yes (Other)
  Sender: FDA-Public Use
  Company Number: 2006057681

PATIENT
  Age: 53 Year
  Sex: Female
  Weight: 77.1115 kg

DRUGS (19)
  1. LYRICA [Suspect]
     Indication: NEURALGIA
     Dosage: 150 MG (75 MG, 2 IN 1 D), ORAL
     Route: 048
     Dates: start: 20060424
  2. THYROID TAB [Suspect]
     Indication: CHRONIC FATIGUE SYNDROME
     Dosage: 60 GRAINS (1 IN 1 D), ORAL
     Route: 048
     Dates: start: 20060331
  3. NORCO [Concomitant]
  4. ACTONEL [Concomitant]
  5. TRAZODONE HCL [Concomitant]
  6. LISINOPRIL [Concomitant]
  7. ALL OTHER THERAPEUTIC PRODUCTS (ALL OTHER THERAPEUTIC PRODUCTS) [Concomitant]
  8. FEXOFENADINE HCL [Concomitant]
  9. NASONEX [Concomitant]
  10. HYDROCODONE BITARTRATE [Concomitant]
  11. PRAVACHOL [Concomitant]
  12. MAXALT [Concomitant]
  13. NEXIUM [Concomitant]
  14. AMBIEN [Concomitant]
  15. ALPRAZOLAM [Concomitant]
  16. NAPROXEN [Concomitant]
  17. MOBIC [Concomitant]
  18. TRIAMTERENE AND HYDROCHLOROTHIAZID ^HARRIS^ (HYDROCHLOROTHIAZIDE, TRIA [Concomitant]
  19. MORPHINE [Concomitant]

REACTIONS (1)
  - ORAL MUCOSAL EXFOLIATION [None]
